FAERS Safety Report 9511752 (Version 1)
Quarter: 2013Q3

REPORT INFORMATION
  Report Type: Spontaneous
  Country: FR (occurrence: None)
  Receive Date: 20130906
  Receipt Date: 20130906
  Transmission Date: 20140515
  Serious: Yes (Hospitalization)
  Sender: FDA-Public Use
  Company Number: CLINIGEN-003054

PATIENT
  Age: 59 Year
  Sex: Male

DRUGS (6)
  1. FOSCAVIR [Suspect]
     Indication: CYTOMEGALOVIRUS INFECTION
     Dates: start: 20130717, end: 20130731
  2. METHOXSALEN [Suspect]
     Indication: CHRONIC GRAFT VERSUS HOST DISEASE IN SKIN
     Route: 042
     Dates: start: 20130801, end: 20130802
  3. CITRIC ACID [Suspect]
     Route: 042
     Dates: start: 20130801, end: 20130802
  4. LEDERFOLINE [Suspect]
     Route: 048
     Dates: start: 20130717, end: 20130807
  5. TIENAM [Suspect]
     Indication: ESCHERICHIA BACTERAEMIA
     Dosage: 9 FD (1  FD, 3 IN 8 HOURS) INTRAVENOUS
     Dates: start: 20130728, end: 20130731
  6. CALCIPARINE [Concomitant]

REACTIONS (1)
  - Escherichia bacteraemia [None]
